FAERS Safety Report 6823613-6 (Version None)
Quarter: 2010Q3

REPORT INFORMATION
  Report Type: 
  Country: None (occurrence: None)
  Receive Date: 20100708
  Receipt Date: 20060729
  Transmission Date: 20110219
  Serious: Yes (Other)
  Sender: FDA-Public Use
  Company Number: US-PFIZER INC-2006094786

PATIENT
  Sex: Female
  Weight: 57.15 kg

DRUGS (6)
  1. CHANTIX [Suspect]
     Indication: SMOKING CESSATION THERAPY
     Route: 065
     Dates: start: 20060727
  2. FOSINOPRIL SODIUM [Concomitant]
     Route: 065
  3. LASIX [Concomitant]
     Route: 065
  4. THYROID TAB [Concomitant]
     Route: 065
  5. ZYRTEC [Concomitant]
     Route: 065
  6. INSULIN [Concomitant]
     Indication: DIABETES MELLITUS
     Route: 065

REACTIONS (1)
  - BLOOD GLUCOSE DECREASED [None]
